FAERS Safety Report 25928446 (Version 1)
Quarter: 2025Q4

REPORT INFORMATION
  Report Type: Other
  Country: ID (occurrence: ID)
  Receive Date: 20251016
  Receipt Date: 20251016
  Transmission Date: 20260117
  Serious: Yes (Other)
  Sender: ANI
  Company Number: ID-ANIPHARMA-030913

PATIENT
  Age: 31 Year
  Sex: Female

DRUGS (5)
  1. CYCLOPHOSPHAMIDE [Suspect]
     Active Substance: CYCLOPHOSPHAMIDE
     Indication: Non-Hodgkin^s lymphoma
     Dosage: R-CHOP CHEMOTHERAPY REGIMEN
  2. RITUXIMAB [Concomitant]
     Active Substance: RITUXIMAB
     Indication: Non-Hodgkin^s lymphoma
     Dosage: R-CHOP CHEMOTHERAPY REGIMEN
  3. DOXORUBICIN [Concomitant]
     Active Substance: DOXORUBICIN
     Indication: Non-Hodgkin^s lymphoma
     Dosage: R-CHOP CHEMOTHERAPY REGIMEN
  4. VINCRISTINE [Concomitant]
     Active Substance: VINCRISTINE
     Indication: Non-Hodgkin^s lymphoma
     Dosage: R-CHOP CHEMOTHERAPY REGIMEN
  5. PREDNISONE [Concomitant]
     Active Substance: PREDNISONE
     Indication: Non-Hodgkin^s lymphoma
     Dosage: R-CHOP CHEMOTHERAPY REGIMEN

REACTIONS (3)
  - Behcet^s syndrome [Unknown]
  - Genital ulceration [Unknown]
  - Infection [Unknown]
